FAERS Safety Report 7562450-4 (Version None)
Quarter: 2011Q2

REPORT INFORMATION
  Report Type: 
  Country: None (occurrence: None)
  Receive Date: 20110614
  Receipt Date: 20110531
  Transmission Date: 20111010
  Serious: Yes (Other)
  Sender: FDA-Public Use
  Company Number: US-1186317

PATIENT
  Age: 84 Year
  Sex: Female
  Weight: 49.8957 kg

DRUGS (1)
  1. BSS INTRAOCULAR SOLUTION [Suspect]
     Indication: EYE IRRIGATION
     Dosage: (INTRAOCULAR)
     Route: 031
     Dates: start: 20110404, end: 20110404

REACTIONS (2)
  - ENDOPHTHALMITIS [None]
  - HYPOPYON [None]
